FAERS Safety Report 16430072 (Version 2)
Quarter: 2019Q3

REPORT INFORMATION
  Report Type: Report from Study
  Country: None (occurrence: TW)
  Receive Date: 20190614
  Receipt Date: 20190716
  Transmission Date: 20191004
  Serious: Yes (Hospitalization)
  Sender: FDA-Public Use
  Company Number: TW-ABBVIE-19K-153-2816181-00

PATIENT
  Age: 40 Year
  Sex: Female
  Weight: 49 kg

DRUGS (8)
  1. PIPERACILLIN. [Concomitant]
     Active Substance: PIPERACILLIN SODIUM
     Indication: CROHN^S DISEASE
     Route: 041
     Dates: start: 20190519, end: 20190522
  2. CEFOTAXIME [Concomitant]
     Active Substance: CEFOTAXIME SODIUM
     Indication: CROHN^S DISEASE
     Route: 041
     Dates: start: 20190508, end: 20190519
  3. CEFIXIME. [Concomitant]
     Active Substance: CEFIXIME
     Indication: CROHN^S DISEASE
     Route: 048
     Dates: start: 20190522
  4. HUMIRA [Suspect]
     Active Substance: ADALIMUMAB
     Indication: CROHN^S DISEASE
     Route: 058
     Dates: start: 20171124, end: 20171207
  5. HUMIRA [Suspect]
     Active Substance: ADALIMUMAB
     Indication: CROHN^S DISEASE
     Route: 058
     Dates: start: 20190328
  6. TAZOBACTAM [Concomitant]
     Active Substance: TAZOBACTAM
     Indication: CROHN^S DISEASE
     Route: 041
     Dates: start: 20190519, end: 20190522
  7. PREDNISOLONE. [Concomitant]
     Active Substance: PREDNISOLONE
     Indication: CROHN^S DISEASE
     Route: 041
     Dates: start: 20190522, end: 20190527
  8. PREDNISOLONE. [Concomitant]
     Active Substance: PREDNISOLONE
     Route: 048
     Dates: start: 20190527

REACTIONS (5)
  - Abdominal abscess [Recovered/Resolved]
  - Dystrophic calcification [Unknown]
  - Nephrolithiasis [Unknown]
  - Ovarian cyst [Unknown]
  - Hyperplastic cholecystopathy [Unknown]

NARRATIVE: CASE EVENT DATE: 20190426
